FAERS Safety Report 5858840-8 (Version None)
Quarter: 2008Q3

REPORT INFORMATION
  Report Type: 
  Country: None (occurrence: None)
  Receive Date: 20080818
  Receipt Date: 20080429
  Transmission Date: 20090109
  Serious: No
  Sender: FDA-Public Use
  Company Number: WAES 0802USA00308

PATIENT
  Age: 77 Year
  Sex: Female
  Weight: 73.4827 kg

DRUGS (6)
  1. JANUVIA [Suspect]
     Indication: DIABETES MELLITUS
     Dosage: 100 MG/DAILY/PO
     Route: 048
     Dates: start: 20080108
  2. ALTACE [Concomitant]
  3. FOSAMAX [Concomitant]
  4. PLAVIX [Concomitant]
  5. PREVACID [Concomitant]
  6. [THERAPY UNSPECIFIED] [Concomitant]

REACTIONS (2)
  - DYSPNOEA [None]
  - WHEEZING [None]
